FAERS Safety Report 18238643 (Version 2)
Quarter: 2020Q3

REPORT INFORMATION
  Report Type: Report from Study
  Country: GB (occurrence: GB)
  Receive Date: 20200907
  Receipt Date: 20200919
  Transmission Date: 20201103
  Serious: Yes (Death, Hospitalization)
  Sender: FDA-Public Use
  Company Number: NVSC2020GB241613

PATIENT
  Sex: Female

DRUGS (1)
  1. KISQALI [Suspect]
     Active Substance: RIBOCICLIB
     Indication: BREAST CANCER
     Dosage: UNK
     Route: 065
     Dates: start: 20200630

REACTIONS (4)
  - Dyspnoea [Unknown]
  - Cough [Unknown]
  - Influenza like illness [Unknown]
  - Death [Fatal]

NARRATIVE: CASE EVENT DATE: 202008
